FAERS Safety Report 8905950 (Version 8)
Quarter: 2013Q2

REPORT INFORMATION
  Report Type: Spontaneous
  Country: US (occurrence: US)
  Receive Date: 20121112
  Receipt Date: 20130516
  Transmission Date: 20140414
  Serious: Yes (Other)
  Sender: FDA-Public Use
  Company Number: US-PFIZER INC-2012278395

PATIENT
  Age: 54 Year
  Sex: Male
  Weight: 84.35 kg

DRUGS (15)
  1. SUTENT [Suspect]
     Indication: RENAL CANCER
     Dosage: 50 MG, 4 WEEKS ON, 2 WEEKS OFF
     Route: 048
     Dates: start: 20121007
  2. SUTENT [Suspect]
     Dosage: 50 MG, 1X/DAY
     Route: 048
     Dates: start: 201211
  3. SUTENT [Suspect]
     Dosage: UNK
     Dates: end: 20130127
  4. WARFARIN [Concomitant]
     Dosage: UNK
  5. METHOCARBAMOL [Concomitant]
     Dosage: UNK
  6. PREDNISONE [Concomitant]
     Dosage: UNK
  7. LORTAB [Concomitant]
     Dosage: UNK
  8. SIMVASTATIN [Concomitant]
     Dosage: UNK
  9. METFORMIN [Concomitant]
     Indication: TYPE 2 DIABETES MELLITUS
     Dosage: 500 MG, 2X/DAY
  10. METFORMIN [Concomitant]
     Dosage: UNK, DAILY
  11. RAMIPRIL [Concomitant]
     Indication: HYPERTENSION
     Dosage: 5 MG, 2X/DAY
  12. ATENOLOL [Concomitant]
     Indication: HYPERTENSION
     Dosage: 25 MG, 2X/DAY
  13. LOVENOX [Concomitant]
     Indication: COAGULOPATHY
     Dosage: UNK, 2 X/DAY (TWICE DAILY)
  14. GLIPIZIDE [Concomitant]
     Dosage: UNK
  15. COUMADIN [Concomitant]
     Dosage: UNK

REACTIONS (19)
  - Vena cava thrombosis [Unknown]
  - Deep vein thrombosis [Recovered/Resolved with Sequelae]
  - Fatigue [Not Recovered/Not Resolved]
  - Pyrexia [Recovered/Resolved]
  - Night sweats [Unknown]
  - Oral pain [Unknown]
  - Ageusia [Unknown]
  - Blood pressure increased [Recovering/Resolving]
  - Yellow skin [Not Recovered/Not Resolved]
  - Skin discolouration [Not Recovered/Not Resolved]
  - Abdominal pain [Recovered/Resolved]
  - Oedema peripheral [Unknown]
  - Back pain [Unknown]
  - Skin exfoliation [Unknown]
  - Yellow skin [Unknown]
  - Abdominal pain [Unknown]
  - Swelling face [Unknown]
  - Eye swelling [Recovered/Resolved]
  - Oedema peripheral [Unknown]
